FAERS Safety Report 5215694-0 (Version None)
Quarter: 2007Q1

REPORT INFORMATION
  Report Type: 
  Country: None (occurrence: None)
  Receive Date: 20070123
  Receipt Date: 20070111
  Transmission Date: 20070707
  Serious: Yes (Other)
  Sender: FDA-Public Use
  Company Number: DE-ROCHE-478230

PATIENT
  Sex: Male

DRUGS (3)
  1. CELLCEPT [Suspect]
     Indication: HEART TRANSPLANT
     Dosage: RECEIVING CELLCEPT THERAPY FOR HEART TRANSPLANTATION 1.5 YEARS AGO.
     Route: 065
  2. SANDIMMUNE [Concomitant]
  3. 1 CONCOMITANT DRUG [Concomitant]
     Dosage: REPORTED AS ^OTHER MEDICATION, NOS^

REACTIONS (1)
  - COORDINATION ABNORMAL [None]
